FAERS Safety Report 6904968-0 (Version None)
Quarter: 2010Q3

REPORT INFORMATION
  Report Type: 
  Country: None (occurrence: None)
  Receive Date: 20100804
  Receipt Date: 20090811
  Transmission Date: 20110219
  Serious: No
  Sender: FDA-Public Use
  Company Number: US-PFIZER INC-2009230368

PATIENT
  Sex: Female
  Weight: 55.329 kg

DRUGS (1)
  1. LYRICA [Suspect]
     Indication: FIBROMYALGIA
     Dosage: UNK
     Dates: start: 20000101, end: 20090614

REACTIONS (2)
  - SEDATION [None]
  - VISUAL ACUITY REDUCED [None]
